FAERS Safety Report 7342566-8 (Version None)
Quarter: 2011Q1

REPORT INFORMATION
  Report Type: 
  Country: None (occurrence: None)
  Receive Date: 20110310
  Receipt Date: 20100831
  Transmission Date: 20110831
  Serious: Yes (Hospitalization, Other)
  Sender: FDA-Public Use
  Company Number: US-BAYER-201028696NA

PATIENT
  Sex: Female
  Weight: 68.027 kg

DRUGS (16)
  1. WELLBUTRIN [Concomitant]
     Indication: ANXIETY
     Dosage: UNK UNK, QD
  2. ALLEGRA [Concomitant]
     Indication: SEASONAL ALLERGY
     Dosage: UNK UNK, PRN
  3. AZITHROMYCIN [Concomitant]
  4. KETOROLAC [Concomitant]
     Dosage: 10 MG, UNK
  5. YASMIN [Suspect]
     Indication: DYSMENORRHOEA
     Dosage: UNK UNK, QD
     Route: 048
     Dates: start: 20040801, end: 20071201
  6. CRANTEX LA [Concomitant]
  7. FLUCONAZOLE [Concomitant]
     Dosage: 150 MG, UNK
  8. PROMETHAZINE - CODEINE [CODEINE PHOSPHATE,PROMETHAZINE HYDROCHLORIDE] [Concomitant]
  9. WELLBUTRIN [Concomitant]
     Indication: DEPRESSION
  10. YAZ [Suspect]
     Indication: DYSMENORRHOEA
     Dosage: UNK
     Dates: start: 20040801, end: 20071201
  11. KETEK [Concomitant]
     Dosage: 400 MG, UNK
  12. YASMIN [Suspect]
     Indication: PREMENSTRUAL SYNDROME
  13. YAZ [Suspect]
     Indication: PREMENSTRUAL SYNDROME
  14. IBUPROFEN [Concomitant]
  15. DICYCLOMINE [Concomitant]
     Dosage: 20 MG, UNK
  16. MOTRIN [Concomitant]

REACTIONS (6)
  - CHOLESTEROSIS [None]
  - CHOLECYSTITIS CHRONIC [None]
  - ABDOMINAL PAIN UPPER [None]
  - CHOLELITHIASIS [None]
  - NAUSEA [None]
  - PANCREATITIS [None]
